FAERS Safety Report 4755906-0 (Version None)
Quarter: 2005Q3

REPORT INFORMATION
  Report Type: 
  Country: None (occurrence: None)
  Receive Date: 20050826
  Receipt Date: 20041018
  Transmission Date: 20060218
  Serious: Yes (Death)
  Sender: FDA-Public Use
  Company Number: USA-2003-0010381

PATIENT
  Age: 36 Year
  Sex: Male
  Weight: 104.3 kg

DRUGS (10)
  1. OXYCONTIN [Suspect]
     Indication: PAIN
     Dosage: 40 MG, BID
  2. VALIUM [Suspect]
  3. CITALOPRAM HYDROBROMIDE [Suspect]
  4. LITHOBID [Concomitant]
  5. ZYRTEC-D 12 HOUR [Concomitant]
  6. SOMA [Concomitant]
  7. FLONASE [Concomitant]
  8. AMITRIPTYLINE HCL [Concomitant]
  9. CELEBREX [Concomitant]
  10. SEROQUEL [Concomitant]

REACTIONS (6)
  - ACCIDENTAL OVERDOSE [None]
  - DRUG INEFFECTIVE [None]
  - DYSGEUSIA [None]
  - MEMORY IMPAIRMENT [None]
  - MULTIPLE DRUG OVERDOSE [None]
  - PERSONALITY CHANGE [None]
